FAERS Safety Report 7888467-8 (Version None)
Quarter: 2011Q4

REPORT INFORMATION
  Report Type: 
  Country: None (occurrence: None)
  Receive Date: 20111103
  Receipt Date: 20111028
  Transmission Date: 20120403
  Serious: Yes (Hospitalization)
  Sender: FDA-Public Use
  Company Number: PHHO2011ES18283

PATIENT
  Sex: Female
  Weight: 54 kg

DRUGS (7)
  1. ENALAPRIL MALEATE [Concomitant]
     Indication: HYPERTENSION
     Dosage: 5 MG, UNK
     Dates: start: 20090101
  2. BLINDED NVA237 [Suspect]
     Dosage: DOUBLE BLINDED
     Dates: start: 20110427, end: 20111023
  3. BLINDED TIOTROPIUM [Suspect]
     Dosage: DOUBLE BLINDED
     Dates: start: 20110427, end: 20111023
  4. BLINDED NO TREATMENT RECEIVED [Suspect]
     Dosage: DOUBLE BLINDED
     Dates: start: 20110427, end: 20111023
  5. BLINDED PLACEBO [Suspect]
     Dosage: DOUBLE BLINDED
     Dates: start: 20110427, end: 20111023
  6. BLINDED QAB149 [Suspect]
     Dosage: DOUBLE BLINDED
     Dates: start: 20110427, end: 20111023
  7. BLINDED QVA149 [Suspect]
     Dosage: DOUBLE BLINDED
     Dates: start: 20110427, end: 20111023

REACTIONS (1)
  - CHRONIC OBSTRUCTIVE PULMONARY DISEASE [None]
